FAERS Safety Report 5974756-0 (Version None)
Quarter: 2008Q4

REPORT INFORMATION
  Report Type: 
  Country: None (occurrence: None)
  Receive Date: 20081201
  Receipt Date: 20081124
  Transmission Date: 20090506
  Serious: Yes (Hospitalization)
  Sender: FDA-Public Use
  Company Number: US-PFIZER INC-2008100388

PATIENT
  Age: 47 Year
  Sex: Male

DRUGS (4)
  1. SERTRALINE [Suspect]
  2. DIPHENHYDRAMINE HCL [Suspect]
  3. LORAZEPAM [Suspect]
     Indication: ANXIETY
     Route: 042
  4. TRETINOIN [Suspect]
     Indication: ACUTE PROMYELOCYTIC LEUKAEMIA
     Route: 048

REACTIONS (1)
  - DELIRIUM [None]
